FAERS Safety Report 25958972 (Version 1)
Quarter: 2025Q4

REPORT INFORMATION
  Report Type: Report from Study
  Country: EU (occurrence: EU)
  Receive Date: 20251025
  Receipt Date: 20251025
  Transmission Date: 20260118
  Serious: Yes (Other)
  Sender: ABBVIE
  Company Number: EU-ABBVIE-6515239

PATIENT
  Age: 44 Year
  Sex: Male

DRUGS (1)
  1. VYALEV [Suspect]
     Active Substance: FOSCARBIDOPA\FOSLEVODOPA
     Indication: Product used for unknown indication
     Dosage: FLOW RATE 1: 0.24 ML/H; DURATION (H): DAYTIME ?FLOW RATE 2: 0.20 ML/H; DURATION (H): NIGHT
     Route: 058
     Dates: start: 20251006

REACTIONS (3)
  - Dysphagia [Unknown]
  - Dry mouth [Not Recovered/Not Resolved]
  - Dysphagia [Not Recovered/Not Resolved]

NARRATIVE: CASE EVENT DATE: 20251018
